FAERS Safety Report 20620556 (Version 3)
Quarter: 2022Q3

REPORT INFORMATION
  Report Type: Spontaneous
  Country: CL (occurrence: None)
  Receive Date: 20220322
  Receipt Date: 20220907
  Transmission Date: 20221027
  Serious: Yes (Death, Hospitalization, Other)
  Sender: FDA-Public Use
  Company Number: CL-ROCHE-3052114

PATIENT
  Sex: Female

DRUGS (2)
  1. MABTHERA [Suspect]
     Active Substance: RITUXIMAB
     Indication: Chronic lymphocytic leukaemia
     Route: 042
     Dates: start: 2017
  2. GAZYVA [Suspect]
     Active Substance: OBINUTUZUMAB
     Indication: Chronic lymphocytic leukaemia
     Dosage: INITIAL DOSE, DAY 1
     Route: 042
     Dates: start: 20220315

REACTIONS (7)
  - Chronic lymphocytic leukaemia recurrent [Unknown]
  - Bronchospasm [Unknown]
  - Abdominal pain [Not Recovered/Not Resolved]
  - Choking sensation [Not Recovered/Not Resolved]
  - Device related infection [Fatal]
  - COVID-19 [Unknown]
  - Pneumonia [Unknown]

NARRATIVE: CASE EVENT DATE: 20220315
